FAERS Safety Report 5139453-2 (Version None)
Quarter: 2006Q4

REPORT INFORMATION
  Report Type: 
  Country: None (occurrence: None)
  Receive Date: 20061030
  Receipt Date: 20060727
  Transmission Date: 20070319
  Serious: No
  Sender: FDA-Public Use
  Company Number: US-GLAXOSMITHKLINE-A0613770A

PATIENT
  Age: 65 Year
  Sex: Female

DRUGS (8)
  1. SEREVENT [Suspect]
     Route: 055
  2. ALBUTEROL [Concomitant]
  3. FLONASE [Concomitant]
  4. NASONEX [Concomitant]
  5. ALLEGRA-D 12 HOUR [Concomitant]
  6. GLUCOVANCE [Concomitant]
  7. NEXIUM [Concomitant]
  8. VITAMINS [Concomitant]

REACTIONS (2)
  - DRUG INEFFECTIVE [None]
  - WHEEZING [None]
